FAERS Safety Report 23456480 (Version 5)
Quarter: 2024Q1

REPORT INFORMATION
  Report Type: Spontaneous
  Country: US (occurrence: US)
  Receive Date: 20240130
  Receipt Date: 20240327
  Transmission Date: 20240410
  Serious: No
  Sender: FDA-Public Use
  Company Number: US-PFIZER INC-202400012822

PATIENT
  Age: 4 Year
  Sex: Female
  Weight: 15.88 kg

DRUGS (2)
  1. GENOTROPIN [Suspect]
     Active Substance: SOMATROPIN
     Indication: Short stature
     Dosage: ADMINISTERED IN THIGHS AND STOMACH
  2. GENOTROPIN [Suspect]
     Active Substance: SOMATROPIN
     Indication: Coffin-Lowry syndrome
     Dosage: 0.6 MG
     Dates: start: 202401

REACTIONS (2)
  - Device leakage [Unknown]
  - Poor quality device used [Unknown]
